FAERS Safety Report 4922859-1 (Version None)
Quarter: 2006Q1

REPORT INFORMATION
  Report Type: 
  Country: None (occurrence: None)
  Receive Date: 20060224
  Receipt Date: 20030605
  Transmission Date: 20060701
  Serious: Yes (Hospitalization, Disabling)
  Sender: FDA-Public Use
  Company Number: US-MERCK-0306USA00847

PATIENT
  Age: 41 Year
  Sex: Male
  Weight: 68 kg

DRUGS (8)
  1. VIOXX [Suspect]
     Indication: ARTHRALGIA
     Route: 048
     Dates: start: 20010801, end: 20011101
  2. VIOXX [Suspect]
     Route: 048
     Dates: start: 20010702, end: 20010706
  3. VIOXX [Suspect]
     Route: 048
     Dates: start: 20010706
  4. VIOXX [Suspect]
     Route: 048
     Dates: start: 20010530
  5. VIOXX [Suspect]
     Indication: INFLAMMATION
     Route: 048
     Dates: start: 20010801, end: 20011101
  6. VIOXX [Suspect]
     Route: 048
     Dates: start: 20010702, end: 20010706
  7. VIOXX [Suspect]
     Route: 048
     Dates: start: 20010706
  8. VIOXX [Suspect]
     Route: 048
     Dates: start: 20010530

REACTIONS (28)
  - ADVERSE EVENT [None]
  - ANAEMIA [None]
  - ARTHRALGIA [None]
  - ARTHROPATHY [None]
  - BACK PAIN [None]
  - CAUSTIC INJURY [None]
  - CELLULITIS [None]
  - CHEST PAIN [None]
  - DRUG INEFFECTIVE [None]
  - HEADACHE [None]
  - HEART RATE IRREGULAR [None]
  - HYPERLIPIDAEMIA [None]
  - HYPERTENSION [None]
  - INGUINAL HERNIA [None]
  - INSOMNIA [None]
  - JOINT INJURY [None]
  - JOINT SWELLING [None]
  - LYMPHOEDEMA [None]
  - MUSCLE SPASMS [None]
  - ONYCHOMYCOSIS [None]
  - RHINITIS ALLERGIC [None]
  - SUBCUTANEOUS ABSCESS [None]
  - SWELLING [None]
  - TIBIAL TORSION [None]
  - TINEA PEDIS [None]
  - TUBERCULOSIS [None]
  - VISION BLURRED [None]
  - VISUAL ACUITY REDUCED [None]
